FAERS Safety Report 25679800 (Version 1)
Quarter: 2025Q3

REPORT INFORMATION
  Report Type: Spontaneous
  Country: EU (occurrence: EU)
  Receive Date: 20250814
  Receipt Date: 20250814
  Transmission Date: 20251021
  Serious: Yes (Hospitalization, Other)
  Sender: AUROBINDO
  Company Number: EU-MEDREG-230712-01

PATIENT
  Age: 42 Year
  Sex: Male
  Weight: 140 kg

DRUGS (6)
  1. BISOPROLOL [Suspect]
     Active Substance: BISOPROLOL
     Indication: Hypertension
     Route: 065
  2. DOXAZOSIN [Concomitant]
     Active Substance: DOXAZOSIN MESYLATE
     Indication: Hypertension
     Route: 065
  3. OMEPRAZOLE [Concomitant]
     Active Substance: OMEPRAZOLE
     Indication: Cardiac failure
     Route: 065
  4. PERINDOPRIL [Concomitant]
     Active Substance: PERINDOPRIL
     Indication: Hypertension
     Route: 065
  5. AMLODIPINE [Concomitant]
     Active Substance: AMLODIPINE BESYLATE
     Indication: Hypertension
     Route: 065
  6. INDAPAMIDE [Concomitant]
     Active Substance: INDAPAMIDE
     Indication: Hypertension
     Route: 065

REACTIONS (1)
  - Bradyarrhythmia [Recovered/Resolved]
